FAERS Safety Report 14828427 (Version 2)
Quarter: 2018Q2

REPORT INFORMATION
  Report Type: Spontaneous
  Country: US (occurrence: US)
  Receive Date: 20180430
  Receipt Date: 20180503
  Transmission Date: 20180711
  Serious: No
  Sender: FDA-Public Use
  Company Number: US-SUNOVION-2018SUN001674

PATIENT
  Sex: Female
  Weight: 63.49 kg

DRUGS (2)
  1. LONHALA MAGNAIR [Suspect]
     Active Substance: GLYCOPYRROLATE
     Indication: CHRONIC OBSTRUCTIVE PULMONARY DISEASE
     Dosage: UNK
     Route: 055
  2. LONHALA MAGNAIR [Suspect]
     Active Substance: GLYCOPYRROLATE
     Dosage: UNK, BID
     Route: 055
     Dates: start: 20180414, end: 20180417

REACTIONS (5)
  - Renal pain [Unknown]
  - Cough [Recovering/Resolving]
  - Chromaturia [Recovered/Resolved]
  - Choking sensation [Unknown]
  - Dysuria [Unknown]
